FAERS Safety Report 10646901 (Version 2)
Quarter: 2014Q4

REPORT INFORMATION
  Report Type: Spontaneous
  Country: US (occurrence: US)
  Receive Date: 20141211
  Receipt Date: 20141224
  Transmission Date: 20150529
  Serious: No
  Sender: FDA-Public Use
  Company Number: US-GILEAD-2014-0126131

PATIENT
  Age: 68 Year
  Sex: Female

DRUGS (1)
  1. LETAIRIS [Suspect]
     Active Substance: AMBRISENTAN
     Indication: PULMONARY ARTERIAL HYPERTENSION
     Dosage: 10 MG, UNK
     Route: 065
     Dates: start: 20080606

REACTIONS (1)
  - Malaise [Unknown]
